FAERS Safety Report 10357390 (Version 3)
Quarter: 2014Q3

REPORT INFORMATION
  Report Type: Spontaneous
  Country: JP (occurrence: JP)
  Receive Date: 20140801
  Receipt Date: 20140926
  Transmission Date: 20150326
  Serious: Yes (Life-Threatening, Other)
  Sender: FDA-Public Use
  Company Number: JP-WATSON-2014-16955

PATIENT
  Age: 72 Year
  Sex: Male

DRUGS (11)
  1. GLUFAST [Concomitant]
     Active Substance: MITIGLINIDE
     Indication: DIABETES MELLITUS
     Dosage: 20 MG, DAILY
     Route: 048
     Dates: end: 20140613
  2. LIPITOR [Concomitant]
     Active Substance: ATORVASTATIN CALCIUM
     Indication: DYSLIPIDAEMIA
     Dosage: 10 MG, DAILY
     Route: 048
  3. KIKLIN [Concomitant]
     Active Substance: BIXALOMER
     Indication: RENAL FAILURE CHRONIC
     Dosage: 2250 MG, DAILY
     Route: 048
  4. PREDNISOLONE. [Concomitant]
     Active Substance: PREDNISOLONE
     Indication: NEPHRITIS
     Dosage: 5 MG, DAILY
     Route: 048
     Dates: start: 2012
  5. RAPAFLO [Suspect]
     Active Substance: SILODOSIN
     Indication: URINARY RETENTION
     Dosage: 4 MG, BID
     Route: 048
     Dates: start: 20140521
  6. TRAZENTA [Suspect]
     Active Substance: LINAGLIPTIN
     Indication: DIABETES MELLITUS
     Dosage: 5 MG, DAILY
     Route: 048
     Dates: end: 20140613
  7. TANKARU [Concomitant]
     Indication: RENAL FAILURE CHRONIC
     Dosage: 3000 MG, DAILY
     Route: 048
  8. TRAMCET [Concomitant]
     Active Substance: ACETAMINOPHEN\TRAMADOL
     Indication: PRODUCT USED FOR UNKNOWN INDICATION
     Dosage: 2 DF, DAILY
     Route: 048
  9. ISONARIF [Concomitant]
     Active Substance: ISONIAZID\RIFAMPIN
     Indication: PULMONARY TUBERCULOSIS
     Dosage: 200 MG, DAILY
     Route: 048
  10. PARIET [Concomitant]
     Active Substance: RABEPRAZOLE SODIUM
     Indication: GASTRIC ULCER
     Dosage: 10 MG, DAILY
     Route: 048
  11. PRIMPERAN [Concomitant]
     Active Substance: METOCLOPRAMIDE HYDROCHLORIDE
     Indication: PRODUCT USED FOR UNKNOWN INDICATION
     Dosage: 5 MG, DAILY
     Route: 048

REACTIONS (2)
  - Off label use [Unknown]
  - Hypoglycaemia [Recovered/Resolved]

NARRATIVE: CASE EVENT DATE: 20140612
